FAERS Safety Report 5982392-5 (Version None)
Quarter: 2008Q4

REPORT INFORMATION
  Report Type: 
  Country: None (occurrence: None)
  Receive Date: 20081208
  Receipt Date: 20081201
  Transmission Date: 20090506
  Serious: Yes (Hospitalization)
  Sender: FDA-Public Use
  Company Number: US-BIOGENIDEC-2008BI029427

PATIENT
  Age: 72 Year
  Sex: Male
  Weight: 65 kg

DRUGS (2)
  1. AVONEX [Suspect]
     Indication: MULTIPLE SCLEROSIS
     Route: 030
     Dates: start: 19980101
  2. AVONEX [Suspect]
     Route: 030

REACTIONS (7)
  - DEMENTIA ALZHEIMER'S TYPE [None]
  - FALL [None]
  - FEMUR FRACTURE [None]
  - HEART RATE DECREASED [None]
  - HIP FRACTURE [None]
  - MOBILITY DECREASED [None]
  - MUSCULAR WEAKNESS [None]
